FAERS Safety Report 15309998 (Version 1)
Quarter: 2018Q3

REPORT INFORMATION
  Report Type: Spontaneous
  Country: US (occurrence: US)
  Receive Date: 20180813
  Receipt Date: 20180813
  Transmission Date: 20181010
  Serious: Yes (Disabling)
  Sender: FDA-Public Use
  Company Number: None

PATIENT
  Age: 26 Year
  Sex: Female
  Weight: 79.38 kg

DRUGS (4)
  1. LASIX [Concomitant]
     Active Substance: FUROSEMIDE
  2. NEXPLANON [Suspect]
     Active Substance: ETONOGESTREL
     Dates: start: 20170104
  3. POTASSIUM [Concomitant]
     Active Substance: POTASSIUM
  4. DIAMOZ [Concomitant]

REACTIONS (12)
  - Dizziness [None]
  - Paraesthesia [None]
  - Memory impairment [None]
  - Blindness [None]
  - Headache [None]
  - Hypoaesthesia [None]
  - Tinnitus [None]
  - Therapy change [None]
  - Epistaxis [None]
  - Papilloedema [None]
  - Idiopathic intracranial hypertension [None]
  - Feeling abnormal [None]

NARRATIVE: CASE EVENT DATE: 20180117
